FAERS Safety Report 13339303 (Version 1)
Quarter: 2017Q1

REPORT INFORMATION
  Report Type: Spontaneous
  Country: US (occurrence: US)
  Receive Date: 20170315
  Receipt Date: 20170315
  Transmission Date: 20170428
  Serious: Yes (Other)
  Sender: FDA-Public Use
  Company Number: US-ENDO PHARMACEUTICALS INC.-2016-005895

PATIENT
  Age: 56 Year
  Sex: Male
  Weight: 102.15 kg

DRUGS (2)
  1. XIAFLEX [Suspect]
     Active Substance: COLLAGENASE CLOSTRIDIUM HISTOLYTICUM
     Indication: DUPUYTREN^S CONTRACTURE
     Route: 026
     Dates: start: 20160103, end: 20160103
  2. DRAMAMINE [Concomitant]
     Active Substance: DIMENHYDRINATE
     Indication: MOTION SICKNESS
     Route: 048
     Dates: start: 1990

REACTIONS (15)
  - Diarrhoea [Not Recovered/Not Resolved]
  - Lymphadenopathy [Recovered/Resolved]
  - Depression [Recovered/Resolved]
  - Chills [Recovered/Resolved]
  - Abnormal behaviour [Recovered/Resolved]
  - Feeling cold [Recovered/Resolved]
  - Pyrexia [Recovered/Resolved]
  - Dyspnoea [Recovered/Resolved]
  - Hypersensitivity [Unknown]
  - Ill-defined disorder [Recovered/Resolved]
  - Abnormal loss of weight [Recovered/Resolved]
  - Mental disorder [Recovered/Resolved]
  - Lacrimation decreased [Recovered/Resolved]
  - Decreased appetite [Unknown]
  - Nervousness [Recovered/Resolved]

NARRATIVE: CASE EVENT DATE: 2016
